FAERS Safety Report 4908169-7 (Version None)
Quarter: 2006Q1

REPORT INFORMATION
  Report Type: 
  Country: None (occurrence: None)
  Receive Date: 20060210
  Receipt Date: 20050906
  Transmission Date: 20060701
  Serious: Yes (Death)
  Sender: FDA-Public Use
  Company Number: US-MERCK-0509USA00736

PATIENT
  Age: 73 Year
  Sex: Female
  Weight: 68 kg

DRUGS (2)
  1. VIOXX [Suspect]
     Indication: RHEUMATOID ARTHRITIS
     Route: 048
     Dates: start: 20020124, end: 20020101
  2. DEPO-MEDROL [Concomitant]
     Route: 065

REACTIONS (9)
  - CORONARY ARTERY DISEASE [None]
  - COUGH [None]
  - GOUT [None]
  - HEADACHE [None]
  - HYPERTENSION [None]
  - HYPERTENSIVE HEART DISEASE [None]
  - NECK PAIN [None]
  - PHOTOSENSITIVITY REACTION [None]
  - SUDDEN CARDIAC DEATH [None]
